FAERS Safety Report 18862069 (Version 2)
Quarter: 2022Q4

REPORT INFORMATION
  Report Type: Spontaneous
  Country: PT (occurrence: PT)
  Receive Date: 20210208
  Receipt Date: 20221206
  Transmission Date: 20230112
  Serious: Yes (Other)
  Sender: FDA-Public Use
  Company Number: PT-NOVARTISPH-NVSC2021PT027583

PATIENT
  Sex: Male

DRUGS (13)
  1. SERTRALINE [Suspect]
     Active Substance: SERTRALINE HYDROCHLORIDE
     Indication: Foetal exposure during pregnancy
     Dosage: MATERNAL DOSE: 50 MG, QD
     Route: 064
  2. ROSUVASTATIN [Suspect]
     Active Substance: ROSUVASTATIN
     Indication: Foetal exposure during pregnancy
     Dosage: MATERNAL DOSE: 20 MG, QD
     Route: 064
     Dates: end: 2013
  3. METHYLDOPA [Suspect]
     Active Substance: METHYLDOPA
     Indication: Foetal exposure during pregnancy
     Dosage: MATERNAL DOSE: 750 MG, QD (AT 27 WEEKS)
     Route: 064
     Dates: start: 2013, end: 2013
  4. METHYLDOPA [Suspect]
     Active Substance: METHYLDOPA
     Dosage: MATERNAL DOSE: 1500 MG, QD (AT 35 WEEKS)
     Route: 064
     Dates: start: 2013
  5. ASPIRIN [Suspect]
     Active Substance: ASPIRIN
     Indication: Foetal exposure during pregnancy
     Dosage: MATERNAL DOSE: 100 MG, QD
     Route: 064
     Dates: start: 2013
  6. BETAMETHASONE [Suspect]
     Active Substance: BETAMETHASONE
     Indication: Foetal exposure during pregnancy
     Dosage: MATERNAL DOSE: UNK
     Route: 064
     Dates: start: 2013
  7. AMITRIPTYLINE [Suspect]
     Active Substance: AMITRIPTYLINE
     Indication: Foetal exposure during pregnancy
     Dosage: MATERNAL DOSE: 10 MG, QD
     Route: 064
     Dates: start: 2013
  8. FERROUS SULFATE [Suspect]
     Active Substance: FERROUS SULFATE
     Indication: Foetal exposure during pregnancy
     Dosage: MATERNAL DOSE: UNK
     Route: 064
  9. ALLOPURINOL [Suspect]
     Active Substance: ALLOPURINOL
     Indication: Foetal exposure during pregnancy
     Dosage: MATERNAL DOSE: 100 MG, QD
     Route: 064
     Dates: end: 2013
  10. NIFEDIPINE [Suspect]
     Active Substance: NIFEDIPINE
     Indication: Foetal exposure during pregnancy
     Dosage: MATERNAL DOSE: UNK
     Route: 064
     Dates: start: 2013
  11. FOLIC ACID [Suspect]
     Active Substance: FOLIC ACID
     Indication: Foetal exposure during pregnancy
     Dosage: MATERNAL DOSE: 5 MG, QD
     Route: 064
  12. DARBEPOETIN ALFA [Suspect]
     Active Substance: DARBEPOETIN ALFA
     Indication: Foetal exposure during pregnancy
     Dosage: MATERNAL DOSE: 100 UG, QW (PROGRESSIVE INCREASE IN DOSE)
     Route: 064
     Dates: start: 2013
  13. VITAMIN B COMPLEX [Suspect]
     Active Substance: CYANOCOBALAMIN\DEXPANTHENOL\NIACINAMIDE\PYRIDOXINE HYDROCHLORIDE\RIBOFLAVIN 5^-PHOSPHATE SODIUM\THIA
     Indication: Foetal exposure during pregnancy
     Dosage: MATERNAL DOSE: UNK
     Route: 064

REACTIONS (2)
  - Premature baby [Unknown]
  - Foetal exposure during pregnancy [Unknown]
